FAERS Safety Report 5857562-7 (Version None)
Quarter: 2008Q3

REPORT INFORMATION
  Report Type: 
  Country: None (occurrence: None)
  Receive Date: 20080822
  Receipt Date: 20080812
  Transmission Date: 20090109
  Serious: Yes (Hospitalization)
  Sender: FDA-Public Use
  Company Number: 20085482

PATIENT
  Sex: Male

DRUGS (1)
  1. LIORESAL [Suspect]
     Indication: MUSCLE SPASTICITY
     Dosage: UNK MCG, DAILY, INTRATHECAL
     Route: 037

REACTIONS (5)
  - ABDOMINAL PAIN [None]
  - DYSPHAGIA [None]
  - FEEDING TUBE COMPLICATION [None]
  - INFECTION [None]
  - LEUKOCYTOSIS [None]
